FAERS Safety Report 4526665-1 (Version None)
Quarter: 2004Q4

REPORT INFORMATION
  Report Type: 
  Country: None (occurrence: None)
  Receive Date: 20041214
  Receipt Date: 20041119
  Transmission Date: 20050328
  Serious: Yes (Hospitalization)
  Sender: FDA-Public Use
  Company Number: FR-GLAXOSMITHKLINE-B0358095A

PATIENT
  Age: 41 Year
  Sex: Female

DRUGS (5)
  1. LAMICTAL [Suspect]
     Indication: EPILEPSY
     Dosage: 25MG TWICE PER DAY
     Route: 048
     Dates: start: 20040922, end: 20041001
  2. PLAQUENIL [Suspect]
     Indication: SYSTEMIC LUPUS ERYTHEMATOSUS
     Dosage: 200MG TWICE PER DAY
     Route: 048
     Dates: end: 20041001
  3. PREDNISONE TAB [Concomitant]
     Indication: SYSTEMIC LUPUS ERYTHEMATOSUS
     Dosage: 12.5MG PER DAY
     Route: 048
  4. CACIT D3 [Concomitant]
     Dosage: 1UNIT PER DAY
     Route: 048
  5. DOLIPRANE [Concomitant]
     Route: 048

REACTIONS (50)
  - ACIDOSIS [None]
  - ANURIA [None]
  - BLOOD CREATINE PHOSPHOKINASE INCREASED [None]
  - BLOOD CREATININE INCREASED [None]
  - BLOOD LACTATE DEHYDROGENASE INCREASED [None]
  - C-REACTIVE PROTEIN INCREASED [None]
  - CHOLESTASIS [None]
  - CLONUS [None]
  - COAGULOPATHY [None]
  - CONFUSIONAL STATE [None]
  - CONJUNCTIVITIS [None]
  - CYANOSIS [None]
  - CYTOLYTIC HEPATITIS [None]
  - DEPRESSED LEVEL OF CONSCIOUSNESS [None]
  - DIARRHOEA [None]
  - DISORIENTATION [None]
  - DRUG RASH WITH EOSINOPHILIA AND SYSTEMIC SYMPTOMS [None]
  - EOSINOPHILIA [None]
  - FACTOR V DEFICIENCY [None]
  - FIBRIN DEGRADATION PRODUCTS INCREASED [None]
  - HAEMOTHORAX [None]
  - HEPATIC FAILURE [None]
  - HEPATITIS [None]
  - HYPERAMYLASAEMIA [None]
  - HYPERLACTACIDAEMIA [None]
  - HYPOKALAEMIA [None]
  - HYPONATRAEMIA [None]
  - HYPOVOLAEMIA [None]
  - HYPOXIA [None]
  - INFLUENZA LIKE ILLNESS [None]
  - LEUKOCYTOSIS [None]
  - LIPASE INCREASED [None]
  - LOSS OF CONSCIOUSNESS [None]
  - MYOSITIS [None]
  - NEUROPATHY [None]
  - NYSTAGMUS [None]
  - OLIGURIA [None]
  - PANCREATITIS [None]
  - PNEUMONIA STAPHYLOCOCCAL [None]
  - PROTHROMBIN TIME PROLONGED [None]
  - PYREXIA [None]
  - RASH MORBILLIFORM [None]
  - RENAL FAILURE ACUTE [None]
  - RESPIRATORY ALKALOSIS [None]
  - RHABDOMYOLYSIS [None]
  - STREPTOCOCCAL SEPSIS [None]
  - TACHYCARDIA [None]
  - TACHYPNOEA [None]
  - THROMBOCYTOPENIA [None]
  - VOMITING [None]
